FAERS Safety Report 8549325-9 (Version None)
Quarter: 2012Q3

REPORT INFORMATION
  Report Type: 
  Country: None (occurrence: None)
  Receive Date: 20120730
  Receipt Date: 20120717
  Transmission Date: 20120928
  Serious: Yes (Other)
  Sender: FDA-Public Use
  Company Number: US-CUBIST-2012S1000610

PATIENT
  Age: 77 Year
  Sex: Female

DRUGS (1)
  1. CUBICIN [Suspect]
     Indication: INFECTION
     Dates: start: 20120704, end: 20120715

REACTIONS (2)
  - RHABDOMYOLYSIS [None]
  - C-REACTIVE PROTEIN INCREASED [None]
